FAERS Safety Report 7514815-4 (Version None)
Quarter: 2011Q2

REPORT INFORMATION
  Report Type: 
  Country: None (occurrence: None)
  Receive Date: 20110422
  Receipt Date: 20100824
  Transmission Date: 20111010
  Serious: Yes (Other)
  Sender: FDA-Public Use
  Company Number: WAES 1008USA03483

PATIENT
  Age: 7 Year
  Sex: Female
  Weight: 18.5975 kg

DRUGS (3)
  1. ZINC [Concomitant]
  2. SINGULAIR [Suspect]
     Indication: HYPERSENSITIVITY
     Dosage: 4 MG/DAILY/PO
     Route: 048
     Dates: start: 20080101, end: 20100824
  3. ARGININE [Concomitant]

REACTIONS (6)
  - ABNORMAL BEHAVIOUR [None]
  - NIGHTMARE [None]
  - BLOOD GLUCOSE DECREASED [None]
  - IRRITABILITY [None]
  - MOOD SWINGS [None]
  - CONVULSION [None]
